FAERS Safety Report 5533312-9 (Version None)
Quarter: 2007Q4

REPORT INFORMATION
  Report Type: 
  Country: None (occurrence: None)
  Receive Date: 20071128
  Receipt Date: 20071115
  Transmission Date: 20080405
  Serious: Yes (Death, Other)
  Sender: FDA-Public Use
  Company Number: 17848

PATIENT
  Sex: Male

DRUGS (5)
  1. METHOTREXATE [Suspect]
     Indication: HODGKIN'S DISEASE
     Dosage: 20 MG/M2 PER_CYCLE IV
     Route: 042
  2. VINBLASTINE [Suspect]
     Indication: HODGKIN'S DISEASE
     Dosage: 6 MG/M2 PER_CYCLE IV
     Route: 042
  3. DOXORUBICIN HCL [Suspect]
     Indication: HODGKIN'S DISEASE
     Dosage: 25 MG/M2 PER_CYCLE IV
     Route: 042
  4. PREDNISONE [Suspect]
     Indication: HODGKIN'S DISEASE
     Dosage: 40 MG/M2 PER_CYCLE PO
     Route: 048
  5. INVOLVED-FIELD RADIATION THERAPY [Suspect]
     Indication: HODGKIN'S DISEASE

REACTIONS (1)
  - EWING'S SARCOMA METASTATIC [None]
